FAERS Safety Report 25800337 (Version 1)
Quarter: 2025Q3

REPORT INFORMATION
  Report Type: Report from Study
  Country: US (occurrence: US)
  Receive Date: 20250915
  Receipt Date: 20250915
  Transmission Date: 20251020
  Serious: Yes (Death, Other)
  Sender: ACADIA PHARMACEUTICALS
  Company Number: US-ACADIA PHARMACEUTICALS INC.-ACA-2025-PIM-010067

PATIENT
  Age: 83 Year
  Sex: Male

DRUGS (19)
  1. NUPLAZID [Suspect]
     Active Substance: PIMAVANSERIN TARTRATE
     Indication: Parkinson^s disease
     Dosage: 34 MILLIGRAM, QD
     Route: 048
     Dates: start: 20250804, end: 20250824
  2. ASPIRIN [Concomitant]
     Active Substance: ASPIRIN
  3. CARBIDOPA\LEVODOPA [Concomitant]
     Active Substance: CARBIDOPA\LEVODOPA
  4. DONEPEZIL [Concomitant]
     Active Substance: DONEPEZIL
  5. FERROUS SULFATE [Concomitant]
     Active Substance: FERROUS SULFATE
  6. FLUOXETINE [Concomitant]
     Active Substance: FLUOXETINE HYDROCHLORIDE
  7. GLIPIZIDE [Concomitant]
     Active Substance: GLIPIZIDE
  8. JARDIANCE [Concomitant]
     Active Substance: EMPAGLIFLOZIN
  9. LANTUS SOLOSTAR [Concomitant]
     Active Substance: INSULIN GLARGINE
  10. LATANOPROST [Concomitant]
     Active Substance: LATANOPROST
  11. MINERALS\VITAMINS [Concomitant]
     Active Substance: MINERALS\VITAMINS
  12. FISH OIL\OMEGA-3 FATTY ACIDS [Concomitant]
     Active Substance: FISH OIL\OMEGA-3 FATTY ACIDS
  13. OMEPRAZOLE [Concomitant]
     Active Substance: OMEPRAZOLE
  14. PIOGLITAZONE [Concomitant]
     Active Substance: PIOGLITAZONE
  15. ROSUVASTATIN [Concomitant]
     Active Substance: ROSUVASTATIN
  16. TIMOLOL MALEATE [Concomitant]
     Active Substance: TIMOLOL MALEATE
  17. TRADJENTA [Concomitant]
     Active Substance: LINAGLIPTIN
  18. VITAMIN B12 [Concomitant]
     Active Substance: CYANOCOBALAMIN
  19. MEMANTINE [Concomitant]
     Active Substance: MEMANTINE

REACTIONS (1)
  - Death [Fatal]

NARRATIVE: CASE EVENT DATE: 20250827
